FAERS Safety Report 12721420 (Version 1)
Quarter: 2016Q3

REPORT INFORMATION
  Report Type: Report from Study
  Country: MX (occurrence: MX)
  Receive Date: 20160907
  Receipt Date: 20160907
  Transmission Date: 20161109
  Serious: Yes (Hospitalization)
  Sender: FDA-Public Use
  Company Number: PHHY2016MX113032

PATIENT
  Age: 61 Year
  Sex: Female
  Weight: 83 kg

DRUGS (5)
  1. SEEBRI BREEZHALER [Suspect]
     Active Substance: GLYCOPYRROLATE
     Indication: ASTHMA
     Dosage: 50 UG, QD (IN THE MORNING)
     Route: 055
     Dates: start: 201606, end: 201607
  2. INSULIN [Concomitant]
     Active Substance: INSULIN NOS
     Indication: PRODUCT USED FOR UNKNOWN INDICATION
     Route: 065
  3. HUMALOG [Concomitant]
     Active Substance: INSULIN LISPRO
     Indication: DIABETES MELLITUS
     Dosage: 29 U, 25 IN THE MORNING AND 4 IN THE AFTERNOON
     Route: 058
     Dates: start: 20160721
  4. CEFTRIAXONE. [Suspect]
     Active Substance: CEFTRIAXONE
     Indication: PRODUCT USED FOR UNKNOWN INDICATION
     Route: 065
  5. AMLODIPINE [Concomitant]
     Active Substance: AMLODIPINE BESYLATE
     Indication: HYPERTENSION
     Dosage: 2 DF, QD
     Route: 048
     Dates: start: 20160714

REACTIONS (7)
  - Drug hypersensitivity [Unknown]
  - Gait disturbance [Unknown]
  - Asphyxia [Recovered/Resolved]
  - Concomitant disease aggravated [Recovered/Resolved]
  - Dyspnoea [Unknown]
  - Emphysema [Unknown]
  - Product use issue [Recovered/Resolved]

NARRATIVE: CASE EVENT DATE: 201606
